FAERS Safety Report 14581172 (Version 1)
Quarter: 2018Q1

REPORT INFORMATION
  Report Type: Spontaneous
  Country: GB (occurrence: FR)
  Receive Date: 20180228
  Receipt Date: 20180228
  Transmission Date: 20180509
  Serious: Yes (Other)
  Sender: FDA-Public Use
  Company Number: FR-FRESENIUS KABI-FK201802101

PATIENT
  Age: 58 Year
  Sex: Male
  Weight: 81 kg

DRUGS (2)
  1. PACLITAXEL 6MG/ML CONCENTRATE FOR SOLUTION FOR INFUSION [Suspect]
     Active Substance: PACLITAXEL
     Indication: LUNG ADENOCARCINOMA STAGE IV
     Route: 042
     Dates: start: 20171218, end: 20180122
  2. AVASTIN [Concomitant]
     Active Substance: BEVACIZUMAB
     Indication: LUNG ADENOCARCINOMA STAGE IV
     Route: 042
     Dates: start: 20171218

REACTIONS (4)
  - Erythema [Recovered/Resolved]
  - Dyspnoea [Recovered/Resolved]
  - Back pain [Recovered/Resolved]
  - Agranulocytosis [Recovering/Resolving]

NARRATIVE: CASE EVENT DATE: 201801
